FAERS Safety Report 8487567-1 (Version None)
Quarter: 2012Q3

REPORT INFORMATION
  Report Type: 
  Country: None (occurrence: None)
  Receive Date: 20120705
  Receipt Date: 20120622
  Transmission Date: 20120928
  Serious: Yes (Hospitalization)
  Sender: FDA-Public Use
  Company Number: CA-JNJFOC-20120101015

PATIENT
  Sex: Female
  Weight: 45 kg

DRUGS (1)
  1. REMICADE [Suspect]
     Indication: COLITIS ULCERATIVE
     Route: 042
     Dates: start: 20110828

REACTIONS (5)
  - HAEMOPTYSIS [None]
  - THROMBOSIS [None]
  - COLECTOMY TOTAL [None]
  - ILEOSTOMY [None]
  - DRUG INEFFECTIVE [None]
